FAERS Safety Report 11837705 (Version 3)
Quarter: 2016Q1

REPORT INFORMATION
  Report Type: Report from Study
  Country: CO (occurrence: CO)
  Receive Date: 20151215
  Receipt Date: 20160211
  Transmission Date: 20160525
  Serious: Yes (Hospitalization)
  Sender: FDA-Public Use
  Company Number: PHHY2015CO164150

PATIENT
  Age: 90 Year
  Sex: Female
  Weight: 35 kg

DRUGS (3)
  1. PROPANOLOL [Concomitant]
     Active Substance: PROPRANOLOL HYDROCHLORIDE
     Indication: BLOOD PRESSURE ABNORMAL
     Dosage: 40 MG, QD
     Route: 065
  2. REVOLADE [Suspect]
     Active Substance: ELTROMBOPAG
     Indication: IMMUNE THROMBOCYTOPENIC PURPURA
     Dosage: 25 MG, QD
     Route: 048
     Dates: start: 20150915
  3. ATIVAN [Concomitant]
     Active Substance: LORAZEPAM
     Indication: SLEEP DISORDER
     Dosage: 2 MG, QD
     Route: 065

REACTIONS (5)
  - Contusion [Not Recovered/Not Resolved]
  - Decreased appetite [Unknown]
  - Tongue discolouration [Unknown]
  - Abasia [Unknown]
  - Thrombosis [Unknown]

NARRATIVE: CASE EVENT DATE: 20160205
